FAERS Safety Report 9214780 (Version 5)
Quarter: 2014Q3

REPORT INFORMATION
  Report Type: Spontaneous
  Country: US (occurrence: US)
  Receive Date: 20130405
  Receipt Date: 20140717
  Transmission Date: 20150326
  Serious: Yes (Disabling)
  Sender: FDA-Public Use
  Company Number: US-009507513-1205USA01959

PATIENT
  Sex: Male

DRUGS (3)
  1. CENTRUM (MINERALS (UNSPECIFIED) (+) VITAMINS (UNSPECIFIED)) [Concomitant]
     Dosage: UNK UNK, QD
  2. PROPECIA [Suspect]
     Active Substance: FINASTERIDE
     Indication: ALOPECIA
     Dosage: 1 MG, QD
     Route: 048
     Dates: start: 200311, end: 20120508
  3. PROPECIA [Suspect]
     Active Substance: FINASTERIDE
     Indication: ANDROGENETIC ALOPECIA

REACTIONS (7)
  - Loss of libido [Not Recovered/Not Resolved]
  - Ejaculation disorder [Unknown]
  - Erectile dysfunction [Unknown]
  - Erectile dysfunction [Not Recovered/Not Resolved]
  - Semen volume decreased [Not Recovered/Not Resolved]
  - Sexual dysfunction [Unknown]
  - Limb injury [Unknown]

NARRATIVE: CASE EVENT DATE: 2004
